FAERS Safety Report 15527847 (Version 1)
Quarter: 2018Q4

REPORT INFORMATION
  Report Type: Report from Study
  Country: US (occurrence: US)
  Receive Date: 20181018
  Receipt Date: 20181018
  Transmission Date: 20190205
  Serious: No
  Sender: FDA-Public Use
  Company Number: US-AMGEN-USASL2018131435

PATIENT
  Age: 54 Year
  Sex: Female

DRUGS (1)
  1. REPATHA [Suspect]
     Active Substance: EVOLOCUMAB
     Indication: HYPERLIPIDAEMIA
     Dosage: 140 MG, Q2WK
     Route: 058

REACTIONS (6)
  - Diarrhoea [Recovering/Resolving]
  - Upper-airway cough syndrome [Unknown]
  - Oropharyngeal pain [Unknown]
  - Eye pruritus [Recovering/Resolving]
  - Eye swelling [Recovering/Resolving]
  - Sneezing [Unknown]

NARRATIVE: CASE EVENT DATE: 20180906
